FAERS Safety Report 25115351 (Version 8)
Quarter: 2025Q4

REPORT INFORMATION
  Report Type: Spontaneous
  Country: JP (occurrence: JP)
  Receive Date: 20250324
  Receipt Date: 20251205
  Transmission Date: 20260118
  Serious: Yes (Congenital Anomaly, Other)
  Sender: NOVARTIS
  Company Number: JP-002147023-NVSJ2025JP003420

PATIENT
  Age: 0 Year
  Sex: Female
  Weight: 2.364 kg

DRUGS (3)
  1. KESIMPTA [Suspect]
     Active Substance: OFATUMUMAB
     Indication: Foetal exposure during pregnancy
     Dosage: MATERNAL EXPOSURE DURING PREGNANCY: 20 MG
     Route: 064
  2. KESIMPTA [Suspect]
     Active Substance: OFATUMUMAB
     Dosage: 20 MG
     Route: 064
     Dates: end: 20240717
  3. KESIMPTA [Suspect]
     Active Substance: OFATUMUMAB
     Dosage: 20 MG
     Route: 050

REACTIONS (5)
  - Premature baby [Unknown]
  - Low birth weight baby [Unknown]
  - Anomaly of external ear congenital [Unknown]
  - Foetal exposure during pregnancy [Unknown]
  - Exposure via breast milk [Unknown]

NARRATIVE: CASE EVENT DATE: 20250301
